FAERS Safety Report 9027936 (Version 1)
Quarter: 2013Q1

REPORT INFORMATION
  Report Type: Spontaneous
  Country: KR (occurrence: KR)
  Receive Date: 20130123
  Receipt Date: 20130123
  Transmission Date: 20140127
  Serious: Yes (Other)
  Sender: FDA-Public Use
  Company Number: CHPA2013KR001231

PATIENT
  Sex: Female

DRUGS (4)
  1. OTRIVIN [Suspect]
     Indication: NASAL CONGESTION
     Dosage: UNK, MORE THAN 8 TIMES/DAY
     Route: 045
     Dates: start: 201212, end: 20130117
  2. OTRIVIN [Suspect]
     Dosage: UNK, 4-5 TIMES/DAY
     Route: 045
     Dates: start: 201211, end: 201211
  3. OTRIVIN [Suspect]
     Dosage: UNK, BID
     Route: 045
     Dates: start: 201210, end: 201211
  4. OTRIVIN [Suspect]
     Dosage: UNK, 1-2 TIMES/DAY
     Route: 045
     Dates: start: 201209, end: 201210

REACTIONS (9)
  - Premature labour [Unknown]
  - Nasal congestion [Not Recovered/Not Resolved]
  - Rebound effect [Not Recovered/Not Resolved]
  - Depressed mood [Unknown]
  - Therapeutic response decreased [Unknown]
  - Inappropriate schedule of drug administration [Unknown]
  - Wrong technique in drug usage process [Unknown]
  - Maternal exposure during pregnancy [Unknown]
  - Incorrect drug administration duration [Unknown]
